FAERS Safety Report 4730769-8 (Version None)
Quarter: 2005Q3

REPORT INFORMATION
  Report Type: 
  Country: None (occurrence: None)
  Receive Date: 20050725
  Receipt Date: 20050517
  Transmission Date: 20060218
  Serious: No
  Sender: FDA-Public Use
  Company Number: USA050598220

PATIENT
  Age: 43 Year
  Sex: Male
  Weight: 100 kg

DRUGS (3)
  1. STRATTERA [Suspect]
     Indication: ATTENTION DEFICIT/HYPERACTIVITY DISORDER
     Dosage: 40 MG IN THE MORNING
     Dates: start: 20050514
  2. ALLOPURINOL [Concomitant]
  3. ANTI-INFLAMMATORY [Concomitant]

REACTIONS (3)
  - DIZZINESS [None]
  - PYREXIA [None]
  - SOMNOLENCE [None]
